FAERS Safety Report 4565887-0 (Version None)
Quarter: 2005Q1

REPORT INFORMATION
  Report Type: 
  Country: None (occurrence: None)
  Receive Date: 20050131
  Receipt Date: 20050120
  Transmission Date: 20050727
  Serious: Yes (Hospitalization)
  Sender: FDA-Public Use
  Company Number: US-AMGEN-US108657

PATIENT
  Age: 55 Year
  Sex: Male

DRUGS (2)
  1. ENBREL [Suspect]
     Indication: RHEUMATOID ARTHRITIS
     Route: 058
     Dates: start: 20050117, end: 20050117
  2. KINERET [Suspect]
     Indication: RHEUMATOID ARTHRITIS
     Dates: end: 20050113

REACTIONS (4)
  - CARDIAC DISORDER [None]
  - DRUG INEFFECTIVE [None]
  - LEUKOCYTOSIS [None]
  - PLEURAL EFFUSION [None]
